FAERS Safety Report 6508352-3 (Version None)
Quarter: 2009Q4

REPORT INFORMATION
  Report Type: 
  Country: None (occurrence: None)
  Receive Date: 20091221
  Receipt Date: 20081106
  Transmission Date: 20100525
  Serious: No
  Sender: FDA-Public Use
  Company Number: US-ASTRAZENECA-2008UW24891

PATIENT
  Sex: Female

DRUGS (3)
  1. CRESTOR [Suspect]
     Indication: CAROTID ARTERY OCCLUSION
     Route: 048
     Dates: start: 20070401
  2. CRESTOR [Suspect]
     Route: 048
  3. ASPIRIN [Concomitant]

REACTIONS (2)
  - ALOPECIA [None]
  - MYALGIA [None]
